FAERS Safety Report 6996436-5 (Version None)
Quarter: 2010Q3

REPORT INFORMATION
  Report Type: 
  Country: None (occurrence: None)
  Receive Date: 20100918
  Receipt Date: 20090310
  Transmission Date: 20110219
  Serious: Yes (Hospitalization)
  Sender: FDA-Public Use
  Company Number: US-WYE-H08544609

PATIENT
  Sex: Female
  Weight: 86.26 kg

DRUGS (3)
  1. PREMPRO [Suspect]
  2. CYCRIN [Suspect]
  3. PREMARIN [Suspect]

REACTIONS (1)
  - DEEP VEIN THROMBOSIS [None]
